FAERS Safety Report 6996730-8 (Version None)
Quarter: 2010Q3

REPORT INFORMATION
  Report Type: 
  Country: None (occurrence: None)
  Receive Date: 20100918
  Receipt Date: 20090624
  Transmission Date: 20110219
  Serious: No
  Sender: FDA-Public Use
  Company Number: US-WYE-H09912109

PATIENT
  Sex: Female

DRUGS (4)
  1. EFFEXOR XR [Suspect]
     Indication: ANXIETY
     Route: 048
     Dates: start: 20090101
  2. EFFEXOR XR [Suspect]
     Indication: DEPRESSION
  3. CLONAZEPAM [Concomitant]
  4. TRAZODONE HCL [Concomitant]

REACTIONS (5)
  - ANXIETY [None]
  - CHEST DISCOMFORT [None]
  - CRYING [None]
  - DYSPNOEA [None]
  - IRRITABILITY [None]
